FAERS Safety Report 11774212 (Version 1)
Quarter: 2015Q4

REPORT INFORMATION
  Report Type: Spontaneous
  Country: GB (occurrence: GB)
  Receive Date: 20151124
  Receipt Date: 20151124
  Transmission Date: 20160304
  Serious: Yes (Death, Hospitalization, Other)
  Sender: FDA-Public Use
  Company Number: GB-SEATTLE GENETICS-2015SGN01867

PATIENT

DRUGS (1)
  1. BRENTUXIMAB VEDOTIN [Suspect]
     Active Substance: BRENTUXIMAB VEDOTIN
     Indication: HODGKIN^S DISEASE
     Dosage: 1.8 MG/KG, 3/WEEK
     Route: 065
     Dates: start: 20141230, end: 20150428

REACTIONS (4)
  - Disease recurrence [None]
  - Gastric cancer [Fatal]
  - Hodgkin^s disease [Fatal]
  - Malignant neoplasm progression [None]
